FAERS Safety Report 15265620 (Version 1)
Quarter: 2018Q3

REPORT INFORMATION
  Report Type: Spontaneous
  Country: US (occurrence: US)
  Receive Date: 20180723
  Receipt Date: 20180723
  Transmission Date: 20181010
  Serious: Yes (Life-Threatening, Hospitalization, Other)
  Sender: FDA-Public Use
  Company Number: None

PATIENT
  Age: 35 Year
  Sex: Female

DRUGS (2)
  1. SKYLA [Suspect]
     Active Substance: LEVONORGESTREL
     Dates: start: 20150105, end: 20161010
  2. PRE?NATAL VITAMINS [Concomitant]

REACTIONS (7)
  - Abortion of ectopic pregnancy [None]
  - Maternal exposure during pregnancy [None]
  - Ruptured ectopic pregnancy [None]
  - Vaginal haemorrhage [None]
  - Pregnancy [None]
  - Pregnancy with contraceptive device [None]
  - Foetal exposure during pregnancy [None]

NARRATIVE: CASE EVENT DATE: 20151113
